FAERS Safety Report 17822963 (Version 1)
Quarter: 2020Q2

REPORT INFORMATION
  Report Type: Spontaneous
  Country: US (occurrence: US)
  Receive Date: 20200522
  Receipt Date: 20200522
  Transmission Date: 20200714
  Serious: Yes (Disabling, Other)
  Sender: FDA-Public Use
  Company Number: None

PATIENT
  Age: 39 Year
  Sex: Male
  Weight: 122.4 kg

DRUGS (2)
  1. 40MG CAPSULES OF FLUOXETINE HCL 7198 [Suspect]
     Active Substance: FLUOXETINE HYDROCHLORIDE
     Indication: DEPRESSION
     Dosage: ?          QUANTITY:90 CAPSULE(S);?
     Route: 048
     Dates: start: 20200226, end: 20200506
  2. CONCERTA [Concomitant]
     Active Substance: METHYLPHENIDATE HYDROCHLORIDE

REACTIONS (11)
  - Dizziness [None]
  - Headache [None]
  - Diarrhoea [None]
  - Product substitution issue [None]
  - Hypertension [None]
  - Nausea [None]
  - Retching [None]
  - Irritability [None]
  - Anxiety [None]
  - Fatigue [None]
  - Insomnia [None]

NARRATIVE: CASE EVENT DATE: 20200227
